FAERS Safety Report 21377815 (Version 1)
Quarter: 2022Q3

REPORT INFORMATION
  Report Type: Report from Study
  Country: ES (occurrence: ES)
  Receive Date: 20220926
  Receipt Date: 20220926
  Transmission Date: 20221026
  Serious: Yes (Other)
  Sender: FDA-Public Use
  Company Number: ES-ABBVIE-4130404

PATIENT
  Age: 75 Year
  Sex: Male
  Weight: 70 kg

DRUGS (1)
  1. VENETOCLAX [Suspect]
     Active Substance: VENETOCLAX
     Indication: Acute myeloid leukaemia
     Dosage: 400
     Route: 048
     Dates: start: 202203, end: 202204

REACTIONS (3)
  - Cytopenia [Unknown]
  - Therapeutic product effect incomplete [Unknown]
  - General symptom [Unknown]

NARRATIVE: CASE EVENT DATE: 20220101
